FAERS Safety Report 7437443-8 (Version None)
Quarter: 2011Q2

REPORT INFORMATION
  Report Type: 
  Country: None (occurrence: None)
  Receive Date: 20110426
  Receipt Date: 20100517
  Transmission Date: 20111010
  Serious: No
  Sender: FDA-Public Use
  Company Number: US-PFIZER INC-2010043228

PATIENT
  Sex: Female
  Weight: 44 kg

DRUGS (2)
  1. ESTRING [Suspect]
     Indication: MENOPAUSE
     Dosage: UNK
     Route: 067
     Dates: start: 20100421
  2. ESTRING [Suspect]
     Indication: VULVOVAGINAL PAIN

REACTIONS (2)
  - DYSPAREUNIA [None]
  - DRUG INEFFECTIVE [None]
